FAERS Safety Report 4933395-0 (Version None)
Quarter: 2006Q1

REPORT INFORMATION
  Report Type: 
  Country: None (occurrence: None)
  Receive Date: 20060111
  Receipt Date: 20050307
  Transmission Date: 20060701
  Serious: No
  Sender: FDA-Public Use
  Company Number: A001-002-006419

PATIENT
  Age: 89 Year
  Sex: Female
  Weight: 51 kg

DRUGS (3)
  1. ARICEPT [Suspect]
     Indication: DEMENTIA ALZHEIMER'S TYPE
     Dosage: 10 MG, 1 IN 1 D, ORAL
     Route: 048
     Dates: start: 20040902, end: 20050105
  2. CLARITIN [Concomitant]
  3. CARDIZEM [Concomitant]

REACTIONS (1)
  - WEIGHT DECREASED [None]
